FAERS Safety Report 8947876 (Version 3)
Quarter: 2012Q4

REPORT INFORMATION
  Report Type: 
  Country: JP (occurrence: JP)
  Receive Date: 20121204
  Receipt Date: 20121212
  Transmission Date: 20130627
  Serious: Yes (Other)
  Sender: FDA-Public Use
  Company Number: JP-PFIZER INC-2012298851

PATIENT
  Age: 60 Year
  Sex: Male
  Weight: 54 kg

DRUGS (4)
  1. FLUOROURACIL [Suspect]
     Dosage: I cycle consisting of 6-week treatment with 5-FU (950 mg/body)
  2. ALEVIATIN [Interacting]
     Dosage: 220 mg, 1x/day
     Route: 048
  3. PHENOBAL [Interacting]
     Dosage: 100 mg, 2x/day
     Route: 048
     Dates: start: 1996
  4. CALCIUM LEVOFOLINATE [Concomitant]
     Dosage: (400 mg/body) once a week and 2 weeks of washout

REACTIONS (5)
  - Drug interaction [Unknown]
  - Anticonvulsant drug level increased [Recovering/Resolving]
  - Gastric disorder [Unknown]
  - Nausea [Unknown]
  - Visual impairment [Unknown]
